FAERS Safety Report 24656864 (Version 1)
Quarter: 2024Q4

REPORT INFORMATION
  Report Type: Spontaneous
  Country: PL (occurrence: PL)
  Receive Date: 20241125
  Receipt Date: 20241125
  Transmission Date: 20250115
  Serious: Yes (Other)
  Sender: ASTELLAS
  Company Number: None

PATIENT
  Age: 66 Year
  Sex: Female

DRUGS (4)
  1. VESICARE [Suspect]
     Active Substance: SOLIFENACIN SUCCINATE
     Indication: Urinary incontinence
     Dosage: IN THE EVENING
     Route: 048
     Dates: start: 20210720
  2. INDIX COMBI [Concomitant]
     Indication: Hypertension
     Dosage: DOSAGE: FROM 10 YEARS; IN THE MORNING
     Route: 048
  3. ESTRIOL [Concomitant]
     Active Substance: ESTRIOL
     Indication: Urinary incontinence
     Route: 067
     Dates: start: 202107
  4. SULODEXIDE [Concomitant]
     Active Substance: SULODEXIDE
     Indication: Product used for unknown indication
     Dosage: DOSAGE: AROUND ONE YEAR
     Route: 048

REACTIONS (5)
  - Cough [Recovering/Resolving]
  - Dry throat [Recovering/Resolving]
  - Tongue dry [Recovering/Resolving]
  - Visual impairment [Recovering/Resolving]
  - Gastrooesophageal reflux disease [Recovering/Resolving]
